FAERS Safety Report 6814764-0 (Version None)
Quarter: 2010Q3

REPORT INFORMATION
  Report Type: 
  Country: None (occurrence: None)
  Receive Date: 20100702
  Receipt Date: 20100622
  Transmission Date: 20110219
  Serious: Yes (Death, Hospitalization)
  Sender: FDA-Public Use
  Company Number: A0751368A

PATIENT
  Sex: Female

DRUGS (8)
  1. LAMIVUDINE [Suspect]
     Indication: HIV INFECTION
     Route: 048
     Dates: start: 20071017
  2. MARAVIROC [Suspect]
     Indication: HIV INFECTION
     Dosage: 300MG PER DAY
     Route: 048
     Dates: start: 20071017
  3. KALETRA [Suspect]
     Indication: HIV INFECTION
     Route: 048
     Dates: start: 20071017
  4. STAVUDINE [Suspect]
     Indication: HIV INFECTION
     Route: 048
     Dates: start: 20071017
  5. CAPTOPRIL [Concomitant]
     Route: 048
  6. HYDROCHLOROTHIAZIDE [Concomitant]
     Route: 048
  7. BACTRIM [Concomitant]
     Route: 048
     Dates: start: 20070801
  8. FLUOXETINE [Concomitant]
     Route: 048
     Dates: start: 20060101

REACTIONS (3)
  - GUILLAIN-BARRE SYNDROME [None]
  - METABOLIC ACIDOSIS [None]
  - PANCREATITIS [None]
